FAERS Safety Report 4378380-5 (Version None)
Quarter: 2004Q2

REPORT INFORMATION
  Report Type: 
  Country: None (occurrence: None)
  Receive Date: 20040616
  Receipt Date: 20040608
  Transmission Date: 20050107
  Serious: Yes (Disabling)
  Sender: FDA-Public Use
  Company Number: US-MERCK-0406USA00857

PATIENT
  Age: 60 Year
  Sex: Female

DRUGS (9)
  1. [THERAPY UNSPECIFIED] [Concomitant]
     Route: 065
  2. ZOVIRAX [Concomitant]
     Route: 065
  3. ACLOVATE [Concomitant]
     Route: 065
  4. FOSAMAX [Suspect]
     Indication: OSTEOPOROSIS PROPHYLAXIS
     Route: 048
     Dates: start: 20040322, end: 20040405
  5. CLARINEX [Concomitant]
     Route: 065
  6. FLUOCINOLONE ACETONIDE [Concomitant]
     Route: 065
  7. ELOCON [Concomitant]
     Route: 065
  8. DERMATOP [Concomitant]
     Route: 065
  9. PREDNISONE [Concomitant]
     Route: 065

REACTIONS (3)
  - EATING DISORDER [None]
  - REGURGITATION OF FOOD [None]
  - VOMITING [None]
